FAERS Safety Report 15284216 (Version 1)
Quarter: 2018Q3

REPORT INFORMATION
  Report Type: Report from Study
  Country: None (occurrence: US)
  Receive Date: 20180816
  Receipt Date: 20180816
  Transmission Date: 20181010
  Serious: Yes (Hospitalization)
  Sender: FDA-Public Use
  Company Number: US-BIOVITRUM-2018US0979

PATIENT
  Age: 17 Year
  Sex: Male

DRUGS (5)
  1. PHENYLALANINE [Concomitant]
     Active Substance: PHENYLALANINE
  2. VAYARIN [Concomitant]
     Active Substance: DOCONEXENT\ICOSAPENT\PHOSPHATIDYL SERINE
  3. FOCALIN XR [Concomitant]
     Active Substance: DEXMETHYLPHENIDATE HYDROCHLORIDE
  4. TYLACTIN RTD 15 [Concomitant]
  5. ORFADIN [Suspect]
     Active Substance: NITISINONE
     Indication: TYROSINAEMIA
     Dosage: 1 QAM AND 2 QPM
     Route: 048
     Dates: start: 20140501

REACTIONS (2)
  - Wisdom teeth removal [Unknown]
  - Endotracheal intubation [Unknown]

NARRATIVE: CASE EVENT DATE: 20180720
